FAERS Safety Report 11402920 (Version 1)
Quarter: 2015Q3

REPORT INFORMATION
  Report Type: Spontaneous
  Country: US (occurrence: US)
  Receive Date: 20150821
  Receipt Date: 20150821
  Transmission Date: 20151125
  Serious: No
  Sender: FDA-Public Use
  Company Number: US-ROCHE-1292635

PATIENT
  Age: 59 Year
  Sex: Male

DRUGS (9)
  1. PEGASYS [Suspect]
     Active Substance: PEGINTERFERON ALFA-2A
     Indication: HEPATITIS C
     Route: 058
     Dates: start: 20130314
  2. EPOGEN [Concomitant]
     Active Substance: ERYTHROPOIETIN
  3. TRAMADOL. [Concomitant]
     Active Substance: TRAMADOL
  4. ONDANSETRON [Concomitant]
     Active Substance: ONDANSETRON
  5. NAPROXEN. [Suspect]
     Active Substance: NAPROXEN
     Indication: HEPATITIS C
     Route: 065
  6. DIAZEPAM. [Suspect]
     Active Substance: DIAZEPAM
     Indication: HEPATITIS C
     Route: 065
  7. VICTRELIS [Suspect]
     Active Substance: BOCEPREVIR
     Indication: HEPATITIS C
     Route: 065
  8. OMEPRAZOLE. [Concomitant]
     Active Substance: OMEPRAZOLE
  9. RIBASPHERE [Suspect]
     Active Substance: RIBAVIRIN
     Indication: HEPATITIS C
     Route: 065

REACTIONS (1)
  - Pain in jaw [Unknown]

NARRATIVE: CASE EVENT DATE: 20131021
